FAERS Safety Report 5910317-7 (Version None)
Quarter: 2008Q4

REPORT INFORMATION
  Report Type: 
  Country: None (occurrence: None)
  Receive Date: 20081007
  Receipt Date: 20080102
  Transmission Date: 20090506
  Serious: No
  Sender: FDA-Public Use
  Company Number: US-ASTRAZENECA-2007UW26886

PATIENT
  Age: 77 Year
  Sex: Female
  Weight: 99.8 kg

DRUGS (7)
  1. ARIMIDEX [Suspect]
     Indication: BREAST CANCER RECURRENT
     Route: 048
     Dates: start: 20070316
  2. HYDROCHLOROTHIAZIDE [Concomitant]
     Route: 048
  3. POTASSIUM CHLORIDE [Concomitant]
  4. NORVASC [Concomitant]
  5. GLUCOSAMINE [Concomitant]
     Route: 048
  6. MULTIVITAMIN [Concomitant]
     Route: 048
  7. RANITIDINE [Concomitant]
     Indication: GASTROOESOPHAGEAL REFLUX DISEASE
     Route: 048

REACTIONS (3)
  - PAIN [None]
  - URINE ODOUR ABNORMAL [None]
  - VAGINAL ODOUR [None]
